FAERS Safety Report 9969120 (Version 4)
Quarter: 2014Q2

REPORT INFORMATION
  Report Type: Report from Study
  Country: US (occurrence: US)
  Receive Date: 20140306
  Receipt Date: 20140623
  Transmission Date: 20141212
  Serious: Yes (Hospitalization, Other)
  Sender: FDA-Public Use
  Company Number: US-ABBVIE-13P-163-1141937-00

PATIENT
  Age: 50 Year
  Sex: Female

DRUGS (10)
  1. HUMIRA [Suspect]
     Indication: CROHN^S DISEASE
     Dates: start: 20130620, end: 201309
  2. HUMIRA [Suspect]
     Dates: start: 20140602
  3. ASACOL HD [Concomitant]
     Indication: CROHN^S DISEASE
     Route: 048
  4. DEXILANT [Concomitant]
     Indication: DYSPEPSIA
     Route: 048
  5. PREDNISONE [Concomitant]
     Indication: CROHN^S DISEASE
     Route: 048
  6. PREDNISONE [Concomitant]
  7. PREDNISONE [Concomitant]
  8. TYLENOL [Concomitant]
     Indication: PAIN
  9. XANAX [Concomitant]
     Indication: ANXIETY
  10. CALCIUM W/VITAMIN D [Concomitant]
     Indication: PRODUCT USED FOR UNKNOWN INDICATION
     Dosage: DAILY

REACTIONS (21)
  - Appendicitis perforated [Recovered/Resolved]
  - Throat irritation [Not Recovered/Not Resolved]
  - Abscess [Recovered/Resolved]
  - Urinary bladder abscess [Recovered/Resolved]
  - Cataract [Not Recovered/Not Resolved]
  - Increased tendency to bruise [Not Recovered/Not Resolved]
  - Vision blurred [Not Recovered/Not Resolved]
  - Oropharyngeal pain [Not Recovered/Not Resolved]
  - Pain [Not Recovered/Not Resolved]
  - Abdominal pain [Not Recovered/Not Resolved]
  - Diarrhoea [Not Recovered/Not Resolved]
  - Pyrexia [Not Recovered/Not Resolved]
  - Pain [Not Recovered/Not Resolved]
  - Dizziness [Unknown]
  - Dyspepsia [Unknown]
  - Stress [Unknown]
  - Injection site pain [Not Recovered/Not Resolved]
  - Abscess [Recovered/Resolved]
  - Rash [Recovering/Resolving]
  - Rash pruritic [Recovering/Resolving]
  - Rash [Recovering/Resolving]
